FAERS Safety Report 8115347-5 (Version None)
Quarter: 2012Q1

REPORT INFORMATION
  Report Type: 
  Country: None (occurrence: None)
  Receive Date: 20120206
  Receipt Date: 20120206
  Transmission Date: 20120608
  Serious: Yes (Other)
  Sender: FDA-Public Use
  Company Number: None

PATIENT
  Age: 33 Year
  Sex: Male
  Weight: 84.368 kg

DRUGS (4)
  1. EPZICOM [Concomitant]
  2. NORVIR [Concomitant]
  3. LORAZEPAM [Suspect]
     Indication: ANXIETY
     Dosage: 1-2 TIMES
     Route: 048
     Dates: start: 20110101, end: 20110922
  4. REYATAZ [Concomitant]

REACTIONS (16)
  - DEPRESSION [None]
  - AMNESIA [None]
  - ANXIETY [None]
  - IMPAIRED WORK ABILITY [None]
  - DEREALISATION [None]
  - MEMORY IMPAIRMENT [None]
  - FEAR [None]
  - DRUG WITHDRAWAL SYNDROME [None]
  - FATIGUE [None]
  - MYDRIASIS [None]
  - INSOMNIA [None]
  - DEPERSONALISATION [None]
  - PANIC REACTION [None]
  - PHOTOPHOBIA [None]
  - PARANOIA [None]
  - AGORAPHOBIA [None]
